FAERS Safety Report 12888283 (Version 2)
Quarter: 2016Q4

REPORT INFORMATION
  Report Type: Spontaneous
  Country: IT (occurrence: IT)
  Receive Date: 20161027
  Receipt Date: 20161107
  Transmission Date: 20170207
  Serious: Yes (Death, Other)
  Sender: FDA-Public Use
  Company Number: IT-AUROBINDO-AUR-APL-2016-13107

PATIENT
  Age: 40 Year
  Sex: Male

DRUGS (2)
  1. CITALOPRAM [Suspect]
     Active Substance: CITALOPRAM HYDROBROMIDE
     Indication: MENTAL DISORDER
     Dosage: UNK
     Route: 065
  2. CHLORPROMAZINE. [Suspect]
     Active Substance: CHLORPROMAZINE
     Indication: MENTAL DISORDER
     Dosage: UNK

REACTIONS (5)
  - Long QT syndrome [Not Recovered/Not Resolved]
  - Torsade de pointes [Not Recovered/Not Resolved]
  - Arrhythmia [Fatal]
  - Drug-disease interaction [Fatal]
  - Loss of consciousness [Not Recovered/Not Resolved]
